FAERS Safety Report 6617441-4 (Version None)
Quarter: 2010Q1

REPORT INFORMATION
  Report Type: 
  Country: None (occurrence: None)
  Receive Date: 20100302
  Receipt Date: 20100212
  Transmission Date: 20100710
  Serious: Yes (Other)
  Sender: FDA-Public Use
  Company Number: 20090616

PATIENT
  Age: 62 Year
  Sex: Male
  Weight: 83.9154 kg

DRUGS (12)
  1. EPINEPHRINE [Suspect]
     Indication: CATARACT OPERATION
     Dosage: 0.25 ML ONCE
     Dates: start: 20091217, end: 20091217
  2. EPINEPHRINE [Suspect]
     Indication: CATARACT OPERATION
     Dosage: 0.25 ML ONCE
     Dates: start: 20091217, end: 20091217
  3. XYLOCAINE [Concomitant]
  4. BSS [Concomitant]
  5. DUOVISC [Concomitant]
  6. IOPIDINE [Concomitant]
  7. OMNIPRED [Concomitant]
  8. VIGAMOX [Concomitant]
  9. VISCOAT [Concomitant]
  10. VISIONBLUE [Concomitant]
  11. TIMOLOL MALEATE [Concomitant]
  12. ANESTHESIA [Concomitant]

REACTIONS (3)
  - ENDOPHTHALMITIS [None]
  - OFF LABEL USE [None]
  - TOXIC ANTERIOR SEGMENT SYNDROME [None]
